FAERS Safety Report 10219929 (Version 3)
Quarter: 2014Q2

REPORT INFORMATION
  Report Type: Spontaneous
  Country: DE (occurrence: DE)
  Receive Date: 20140605
  Receipt Date: 20140630
  Transmission Date: 20141212
  Serious: Yes (Other)
  Sender: FDA-Public Use
  Company Number: DE-ELI_LILLY_AND_COMPANY-DE201404009772

PATIENT
  Age: 67 Year
  Sex: Female

DRUGS (2)
  1. FORSTEO [Suspect]
     Indication: OSTEOPOROSIS
     Dosage: 20 UG, QD
     Route: 058
     Dates: start: 20131213, end: 20140220
  2. FORSTEO [Suspect]
     Indication: SPINAL FRACTURE

REACTIONS (7)
  - Coronary artery disease [Unknown]
  - Supraventricular extrasystoles [Unknown]
  - Ventricular extrasystoles [Unknown]
  - Chest pain [Recovered/Resolved]
  - Fatigue [Unknown]
  - Arrhythmia [Unknown]
  - Intervertebral disc disorder [Unknown]
